FAERS Safety Report 4545236-4 (Version None)
Quarter: 2005Q1

REPORT INFORMATION
  Report Type: 
  Country: None (occurrence: None)
  Receive Date: 20050103
  Receipt Date: 20041220
  Transmission Date: 20050727
  Serious: Yes (Other)
  Sender: FDA-Public Use
  Company Number: 2004-DE-06307GD

PATIENT
  Age: 27 Year

DRUGS (4)
  1. NEVIRAPINE (NEVIRAPINE) [Suspect]
     Indication: CASTLEMAN'S DISEASE
  2. NEVIRAPINE (NEVIRAPINE) [Suspect]
     Indication: HIV INFECTION
  3. COMBIVIR [Suspect]
     Indication: CASTLEMAN'S DISEASE
  4. COMBIVIR [Suspect]
     Indication: HIV INFECTION

REACTIONS (2)
  - CONDITION AGGRAVATED [None]
  - EVAN'S SYNDROME [None]
